FAERS Safety Report 7579474-3 (Version None)
Quarter: 2011Q2

REPORT INFORMATION
  Report Type: 
  Country: None (occurrence: None)
  Receive Date: 20110622
  Receipt Date: 20110517
  Transmission Date: 20111010
  Serious: No
  Sender: FDA-Public Use
  Company Number: PAS061411

PATIENT
  Age: 51 Year
  Sex: Male
  Weight: 95.2554 kg

DRUGS (2)
  1. 60:60 RINSE PART A APF SOLUTION [Suspect]
     Indication: DENTAL FLUORIDE THERAPY
     Dosage: 1 FL OZ 2XYR
     Dates: start: 20110512
  2. 60:60 RINSE PART B STANNOUS FLUORIDE SOLUTION [Suspect]
     Indication: DENTAL FLUORIDE THERAPY
     Dosage: 0.25 OZ 2XYR
     Dates: start: 20110512

REACTIONS (5)
  - NAUSEA [None]
  - ABASIA [None]
  - VOMITING [None]
  - DIZZINESS [None]
  - SYNCOPE [None]
